FAERS Safety Report 19144827 (Version 1)
Quarter: 2021Q2

REPORT INFORMATION
  Report Type: Other
  Country: CA (occurrence: CA)
  Receive Date: 20210416
  Receipt Date: 20210416
  Transmission Date: 20210717
  Serious: Yes (Other)
  Sender: FDA-Public Use
  Company Number: CA-APOTEX-2021AP008917

PATIENT
  Age: 66 Year
  Sex: Female
  Weight: 63.95 kg

DRUGS (1)
  1. APO?RISEDRONATE [Suspect]
     Active Substance: RISEDRONATE SODIUM
     Indication: OSTEOPOROSIS
     Dosage: 150 MILLIGRAM
     Route: 065

REACTIONS (2)
  - Arthralgia [Unknown]
  - Abdominal discomfort [Unknown]
